FAERS Safety Report 11051343 (Version 1)
Quarter: 2015Q2

REPORT INFORMATION
  Report Type: Spontaneous
  Country: US (occurrence: None)
  Receive Date: 20150420
  Receipt Date: 20150420
  Transmission Date: 20150821
  Serious: Yes (Disabling)
  Sender: FDA-Public Use
  Company Number: None

PATIENT
  Age: 29 Year
  Sex: Male
  Weight: 63.5 kg

DRUGS (2)
  1. PROVIGIL [Suspect]
     Active Substance: MODAFINIL
     Indication: ATTENTION DEFICIT/HYPERACTIVITY DISORDER
     Dosage: 100MG PER DAY, ONCE DAILY, TAKEN BY MOUTH
     Route: 048
     Dates: start: 20150401, end: 20150409
  2. NEXIUM [Concomitant]
     Active Substance: ESOMEPRAZOLE MAGNESIUM

REACTIONS (6)
  - Paraesthesia [None]
  - Skin burning sensation [None]
  - Dyskinesia [None]
  - Anxiety [None]
  - Hypoaesthesia [None]
  - Muscle twitching [None]

NARRATIVE: CASE EVENT DATE: 20150409
